FAERS Safety Report 9232401 (Version 1)
Quarter: 2013Q2

REPORT INFORMATION
  Report Type: Spontaneous
  Country: US (occurrence: US)
  Receive Date: 20130416
  Receipt Date: 20130416
  Transmission Date: 20140414
  Serious: No
  Sender: FDA-Public Use
  Company Number: US-BIOGENIDEC-2013BI029725

PATIENT
  Age: 38 Year
  Sex: Female

DRUGS (2)
  1. AVONEX [Suspect]
     Indication: MULTIPLE SCLEROSIS
     Route: 030
     Dates: start: 20130221
  2. AVONEX [Suspect]
     Indication: MULTIPLE SCLEROSIS
     Route: 030
     Dates: start: 2013

REACTIONS (4)
  - Fear [Recovered/Resolved]
  - Injection site bruising [Unknown]
  - Injection site pain [Recovered/Resolved]
  - Influenza like illness [Recovered/Resolved]
